FAERS Safety Report 9880832 (Version 2)
Quarter: 2014Q1

REPORT INFORMATION
  Report Type: Spontaneous
  Country: NL (occurrence: NL)
  Receive Date: 20140207
  Receipt Date: 20140219
  Transmission Date: 20141002
  Serious: Yes (Hospitalization, Other)
  Sender: FDA-Public Use
  Company Number: NL-ROCHE-1343315

PATIENT
  Sex: Female

DRUGS (5)
  1. XOLAIR [Suspect]
     Indication: PRODUCT USED FOR UNKNOWN INDICATION
     Route: 065
  2. XOLAIR [Suspect]
     Route: 065
  3. XOLAIR [Suspect]
     Route: 065
  4. XOLAIR [Suspect]
     Route: 065
  5. VITAMIN B12 [Concomitant]

REACTIONS (16)
  - Lymphadenopathy [Unknown]
  - Heart rate increased [Unknown]
  - Pain [Unknown]
  - Erythema [Unknown]
  - Palpitations [Unknown]
  - Malaise [Unknown]
  - Stress [Unknown]
  - Erythema [Unknown]
  - Dyspnoea [Unknown]
  - Headache [Unknown]
  - Nausea [Unknown]
  - Dizziness [Unknown]
  - Fatigue [Unknown]
  - Syncope [Unknown]
  - Feeling abnormal [Unknown]
  - Oropharyngeal pain [Unknown]
